FAERS Safety Report 8250395-6 (Version None)
Quarter: 2012Q2

REPORT INFORMATION
  Report Type: 
  Country: None (occurrence: None)
  Receive Date: 20120402
  Receipt Date: 20120325
  Transmission Date: 20120825
  Serious: Yes (Other)
  Sender: FDA-Public Use
  Company Number: DE-JNJFOC-20120311747

PATIENT
  Sex: Male
  Weight: 60 kg

DRUGS (2)
  1. RISPERDAL [Suspect]
     Indication: PRODUCT USED FOR UNKNOWN INDICATION
     Route: 048
  2. RISPERDAL [Suspect]
     Route: 048
     Dates: start: 20120325, end: 20120325

REACTIONS (3)
  - HYPOTENSION [None]
  - SUICIDE ATTEMPT [None]
  - FATIGUE [None]
